FAERS Safety Report 5194657-8 (Version None)
Quarter: 2006Q4

REPORT INFORMATION
  Report Type: 
  Country: None (occurrence: None)
  Receive Date: 20061222
  Receipt Date: 20061222
  Transmission Date: 20070319
  Serious: Yes (Hospitalization)
  Sender: FDA-Public Use
  Company Number: None

PATIENT
  Sex: Male
  Weight: 79.8331 kg

DRUGS (3)
  1. GEMZAR [Suspect]
     Indication: MANTLE CELL LYMPHOMA
     Dosage: 1728MG/ IV / DAY 1, 8 Q21D
     Route: 042
     Dates: start: 20061114
  2. NOVANTRONE [Suspect]
     Indication: MANTLE CELL LYMPHOMA
     Dosage: 19.2MG / IV / D1  Q21D
     Route: 042
     Dates: start: 20061114
  3. RITUXAN [Suspect]
     Indication: MANTLE CELL LYMPHOMA
     Dosage: 720MG /  IV  / D1 Q21D
     Route: 042
     Dates: start: 20061114

REACTIONS (2)
  - ABDOMINAL PAIN [None]
  - PYREXIA [None]
